FAERS Safety Report 24094696 (Version 3)
Quarter: 2025Q1

REPORT INFORMATION
  Report Type: Spontaneous
  Country: JP (occurrence: JP)
  Receive Date: 20240716
  Receipt Date: 20250329
  Transmission Date: 20250409
  Serious: Yes (Death, Hospitalization, Other)
  Sender: TAKEDA
  Company Number: JP-JNJFOC-20240731455

PATIENT
  Age: 12 Year
  Sex: Male
  Weight: 23 kg

DRUGS (42)
  1. VELCADE [Suspect]
     Active Substance: BORTEZOMIB
     Indication: Transplant rejection
     Dosage: 1.1 MILLIGRAM, QD
     Dates: start: 20231102, end: 20231112
  2. PROGRAF [Concomitant]
     Active Substance: TACROLIMUS
     Indication: Immunosuppression
  3. PROGRAF [Concomitant]
     Active Substance: TACROLIMUS
  4. PROGRAF [Concomitant]
     Active Substance: TACROLIMUS
  5. PROGRAF [Concomitant]
     Active Substance: TACROLIMUS
     Indication: Immunosuppression
  6. REBAMIPIDE [Concomitant]
     Active Substance: REBAMIPIDE
     Indication: Product used for unknown indication
     Dates: start: 20231113, end: 20231119
  7. REBAMIPIDE [Concomitant]
     Active Substance: REBAMIPIDE
  8. SULFAMETHOXAZOLE\TRIMETHOPRIM [Concomitant]
     Active Substance: SULFAMETHOXAZOLE\TRIMETHOPRIM
     Indication: Product used for unknown indication
     Dates: start: 20231117, end: 20231119
  9. SULFAMETHOXAZOLE\TRIMETHOPRIM [Concomitant]
     Active Substance: SULFAMETHOXAZOLE\TRIMETHOPRIM
  10. OMEPRAZOLE SODIUM [Concomitant]
     Active Substance: OMEPRAZOLE SODIUM
     Indication: Product used for unknown indication
  11. SOYBEAN OIL [Concomitant]
     Active Substance: SOYBEAN OIL
     Indication: Product used for unknown indication
  12. SOYBEAN OIL [Concomitant]
     Active Substance: SOYBEAN OIL
  13. FULCALIQ [Concomitant]
     Active Substance: AMINO ACIDS\CARBOHYDRATES\ELECTROLYTES NOS\VITAMINS
     Indication: Product used for unknown indication
  14. Mineric 5 [Concomitant]
     Indication: Product used for unknown indication
  15. Aselend [Concomitant]
     Indication: Product used for unknown indication
  16. Aselend [Concomitant]
  17. LEVOCARNITINE [Concomitant]
     Active Substance: LEVOCARNITINE
     Indication: Product used for unknown indication
  18. Denosine [Concomitant]
     Indication: Product used for unknown indication
     Dates: start: 20231011, end: 20231112
  19. Denosine [Concomitant]
     Dates: start: 20231113, end: 20231206
  20. SOLU-MEDROL [Concomitant]
     Active Substance: METHYLPREDNISOLONE SODIUM SUCCINATE
     Indication: Immunosuppression
     Dates: start: 20231013, end: 20231210
  21. SOLU-MEDROL [Concomitant]
     Active Substance: METHYLPREDNISOLONE SODIUM SUCCINATE
  22. FUROSEMIDE [Concomitant]
     Active Substance: FUROSEMIDE
     Indication: Product used for unknown indication
  23. FUROSEMIDE [Concomitant]
     Active Substance: FUROSEMIDE
     Dosage: 40 MILLIGRAM, QD
     Dates: start: 20231107, end: 20231110
  24. FUROSEMIDE [Concomitant]
     Active Substance: FUROSEMIDE
     Dosage: 60 MILLIGRAM, QD
     Dates: start: 20231111, end: 20231112
  25. FUROSEMIDE [Concomitant]
     Active Substance: FUROSEMIDE
     Dosage: 40 MILLIGRAM, QD
     Dates: start: 20231113
  26. FUROSEMIDE [Concomitant]
     Active Substance: FUROSEMIDE
  27. CANRENOATE POTASSIUM [Concomitant]
     Active Substance: CANRENOATE POTASSIUM
     Indication: Product used for unknown indication
  28. CANRENOATE POTASSIUM [Concomitant]
     Active Substance: CANRENOATE POTASSIUM
  29. ALBUMINAR [Concomitant]
     Active Substance: ALBUMIN HUMAN
     Indication: Product used for unknown indication
  30. ALBUMINAR [Concomitant]
     Active Substance: ALBUMIN HUMAN
  31. CEFEPIME HYDROCHLORIDE [Concomitant]
     Active Substance: CEFEPIME HYDROCHLORIDE
     Indication: Product used for unknown indication
  32. CEFEPIME HYDROCHLORIDE [Concomitant]
     Active Substance: CEFEPIME HYDROCHLORIDE
  33. Hishiphagen c [Concomitant]
     Indication: Product used for unknown indication
  34. Hishiphagen c [Concomitant]
  35. VEEN D [Concomitant]
     Active Substance: CALCIUM CHLORIDE\DEXTROSE\POTASSIUM CHLORIDE\SODIUM ACETATE\SODIUM CHLORIDE
     Indication: Product used for unknown indication
     Dosage: UNK, QD
     Dates: start: 20231115
  36. VEEN D [Concomitant]
     Active Substance: CALCIUM CHLORIDE\DEXTROSE\POTASSIUM CHLORIDE\SODIUM ACETATE\SODIUM CHLORIDE
     Dosage: UNK, QD
     Dates: start: 20231116
  37. ALBUMIN HUMAN [Concomitant]
     Active Substance: ALBUMIN HUMAN
     Indication: Product used for unknown indication
  38. FULCALIQ [Concomitant]
     Active Substance: AMINO ACIDS\CARBOHYDRATES\ELECTROLYTES NOS\VITAMINS
  39. Mineric 5 [Concomitant]
  40. Denosine [Concomitant]
  41. EVEROLIMUS [Concomitant]
     Active Substance: EVEROLIMUS
     Indication: Immunosuppression
  42. OMEPRAZOLE [Concomitant]
     Active Substance: OMEPRAZOLE

REACTIONS (6)
  - Acute respiratory distress syndrome [Fatal]
  - Pneumothorax [Unknown]
  - Renal failure [Unknown]
  - Hepatic failure [Unknown]
  - Gastrointestinal haemorrhage [Unknown]
  - Off label use [Unknown]

NARRATIVE: CASE EVENT DATE: 20230101
